FAERS Safety Report 6044977-X (Version None)
Quarter: 2009Q1

REPORT INFORMATION
  Report Type: 
  Country: None (occurrence: None)
  Receive Date: 20090116
  Receipt Date: 20090116
  Transmission Date: 20090719
  Serious: Yes (Other)
  Sender: FDA-Public Use
  Company Number: None

PATIENT
  Age: 1 Year
  Sex: Male
  Weight: 11.7935 kg

DRUGS (1)
  1. SINGULAIR [Suspect]
     Indication: WHEEZING
     Dosage: 1 CHEWABLE TABLET AT BEDTIME PO
     Route: 048
     Dates: start: 20090111

REACTIONS (3)
  - HALLUCINATION [None]
  - INSOMNIA [None]
  - MOOD ALTERED [None]
